FAERS Safety Report 7933403-9 (Version None)
Quarter: 2011Q4

REPORT INFORMATION
  Report Type: 
  Country: None (occurrence: None)
  Receive Date: 20111122
  Receipt Date: 20111122
  Transmission Date: 20120403
  Serious: Yes (Other)
  Sender: FDA-Public Use
  Company Number: None

PATIENT
  Age: 31 Year
  Sex: Female
  Weight: 86.182 kg

DRUGS (1)
  1. MIRENA [Suspect]
     Indication: CONTRACEPTION
     Dosage: 1 ITEM INSERTED
     Route: 067
     Dates: start: 20110301, end: 20111101

REACTIONS (20)
  - HEADACHE [None]
  - SUICIDAL IDEATION [None]
  - BRADYPHRENIA [None]
  - FATIGUE [None]
  - MEMORY IMPAIRMENT [None]
  - MAJOR DEPRESSION [None]
  - LOSS OF LIBIDO [None]
  - APHASIA [None]
  - QUALITY OF LIFE DECREASED [None]
  - PARANOIA [None]
  - SCOTOMA [None]
  - MOOD SWINGS [None]
  - MIGRAINE [None]
  - VISION BLURRED [None]
  - ANGER [None]
  - AGGRESSION [None]
  - ANXIETY [None]
  - VAGINAL DISCHARGE [None]
  - ALOPECIA [None]
  - FEELING ABNORMAL [None]
